FAERS Safety Report 10487032 (Version 6)
Quarter: 2015Q2

REPORT INFORMATION
  Report Type: Spontaneous
  Country: GB (occurrence: GB)
  Receive Date: 20141001
  Receipt Date: 20150429
  Transmission Date: 20150821
  Serious: Yes (Life-Threatening, Hospitalization)
  Sender: FDA-Public Use
  Company Number: GB-BEH-2014045148

PATIENT
  Age: 50 Year
  Sex: Female

DRUGS (43)
  1. BERINERT [Suspect]
     Active Substance: HUMAN C1-ESTERASE INHIBITOR
     Indication: HEREDITARY ANGIOEDEMA
     Route: 042
     Dates: start: 20140630, end: 20140630
  2. BERINERT [Suspect]
     Active Substance: HUMAN C1-ESTERASE INHIBITOR
     Route: 042
     Dates: start: 20140720, end: 20140720
  3. BERINERT [Suspect]
     Active Substance: HUMAN C1-ESTERASE INHIBITOR
     Route: 042
     Dates: start: 20140801, end: 20140801
  4. BERINERT [Suspect]
     Active Substance: HUMAN C1-ESTERASE INHIBITOR
     Route: 042
     Dates: start: 20140819, end: 20140819
  5. BERINERT [Suspect]
     Active Substance: HUMAN C1-ESTERASE INHIBITOR
     Route: 042
     Dates: start: 20140822, end: 20140822
  6. BERINERT [Suspect]
     Active Substance: HUMAN C1-ESTERASE INHIBITOR
     Route: 042
     Dates: start: 20140828, end: 20140828
  7. BERINERT [Suspect]
     Active Substance: HUMAN C1-ESTERASE INHIBITOR
     Indication: HEREDITARY ANGIOEDEMA
     Route: 042
     Dates: start: 20140909, end: 20140909
  8. CSL830 OR PLACEBO [Suspect]
     Active Substance: HUMAN C1-ESTERASE INHIBITOR
     Route: 058
     Dates: start: 20140828, end: 20140828
  9. CSL830 OR PLACEBO [Suspect]
     Active Substance: HUMAN C1-ESTERASE INHIBITOR
  10. CSL830 OR PLACEBO [Suspect]
     Active Substance: HUMAN C1-ESTERASE INHIBITOR
  11. BERINERT [Suspect]
     Active Substance: HUMAN C1-ESTERASE INHIBITOR
     Indication: PROPHYLAXIS
     Dosage: START DATE: ??-???-2009, PROPHYLAXIS
     Route: 042
     Dates: start: 2009
  12. BERINERT [Suspect]
     Active Substance: HUMAN C1-ESTERASE INHIBITOR
     Route: 042
     Dates: start: 20140726, end: 20140726
  13. CSL830 OR PLACEBO [Suspect]
     Active Substance: HUMAN C1-ESTERASE INHIBITOR
     Route: 058
     Dates: start: 20140825, end: 20140825
  14. CSL830 OR PLACEBO [Suspect]
     Active Substance: HUMAN C1-ESTERASE INHIBITOR
  15. BERINERT [Suspect]
     Active Substance: HUMAN C1-ESTERASE INHIBITOR
     Route: 042
     Dates: start: 20140712, end: 20140712
  16. CSL830 OR PLACEBO [Suspect]
     Active Substance: HUMAN C1-ESTERASE INHIBITOR
     Route: 058
     Dates: start: 20140804, end: 20140804
  17. CSL830 OR PLACEBO [Suspect]
     Active Substance: HUMAN C1-ESTERASE INHIBITOR
     Route: 058
     Dates: start: 20140811, end: 20140811
  18. CSL830 OR PLACEBO [Suspect]
     Active Substance: HUMAN C1-ESTERASE INHIBITOR
     Route: 058
     Dates: start: 20140818, end: 20140818
  19. CSL830 OR PLACEBO [Suspect]
     Active Substance: HUMAN C1-ESTERASE INHIBITOR
  20. CSL830 OR PLACEBO [Suspect]
     Active Substance: HUMAN C1-ESTERASE INHIBITOR
     Route: 058
     Dates: start: 20140814, end: 20140814
  21. HORMONE ANTAGONISTS AND RELATED AGENTS [Concomitant]
     Active Substance: UNSPECIFIED INGREDIENT
     Indication: PROPHYLAXIS
     Dosage: START DATE: ??-???-2009, ONGOING: YES
     Route: 058
  22. BERINERT [Suspect]
     Active Substance: HUMAN C1-ESTERASE INHIBITOR
     Dosage: START DATE: ??-???-2009, AT FIRST SIGN OF ATTACK
     Route: 042
     Dates: start: 2009
  23. BERINERT [Suspect]
     Active Substance: HUMAN C1-ESTERASE INHIBITOR
     Route: 042
     Dates: start: 20140715, end: 20140715
  24. BERINERT [Suspect]
     Active Substance: HUMAN C1-ESTERASE INHIBITOR
     Route: 042
     Dates: start: 20140727, end: 20140727
  25. BERINERT [Suspect]
     Active Substance: HUMAN C1-ESTERASE INHIBITOR
     Route: 042
     Dates: start: 20140904, end: 20140904
  26. CSL830 OR PLACEBO [Suspect]
     Active Substance: HUMAN C1-ESTERASE INHIBITOR
     Route: 058
     Dates: start: 20140731, end: 20140731
  27. HORMONE ANTAGONISTS AND RELATED AGENTS [Concomitant]
     Active Substance: UNSPECIFIED INGREDIENT
     Indication: PROPHYLAXIS
     Dosage: START DATE: ??-???-2009, ONGOING: YES
     Route: 058
     Dates: start: 20140703
  28. CSL830 OR PLACEBO [Suspect]
     Active Substance: HUMAN C1-ESTERASE INHIBITOR
     Route: 058
     Dates: start: 20140724, end: 20140724
  29. CSL830 OR PLACEBO [Suspect]
     Active Substance: HUMAN C1-ESTERASE INHIBITOR
     Indication: PROPHYLAXIS
     Dosage: STUDY PRODUCT: 1500 IU/PLACEBO
     Route: 058
     Dates: start: 20140908, end: 20140908
  30. CSL830 OR PLACEBO [Suspect]
     Active Substance: HUMAN C1-ESTERASE INHIBITOR
  31. HORMONE ANTAGONISTS AND RELATED AGENTS [Concomitant]
     Active Substance: UNSPECIFIED INGREDIENT
     Indication: HEREDITARY ANGIOEDEMA
     Dosage: 2 OCCASIONS, EXACT DATES UNKNOWN
  32. BERINERT [Suspect]
     Active Substance: HUMAN C1-ESTERASE INHIBITOR
     Route: 042
     Dates: start: 20140708, end: 20140708
  33. BERINERT [Suspect]
     Active Substance: HUMAN C1-ESTERASE INHIBITOR
     Route: 042
     Dates: start: 20140809, end: 20140809
  34. BERINERT [Suspect]
     Active Substance: HUMAN C1-ESTERASE INHIBITOR
     Route: 042
     Dates: start: 20140831, end: 20140831
  35. CSL830 OR PLACEBO [Suspect]
     Active Substance: HUMAN C1-ESTERASE INHIBITOR
     Route: 058
     Dates: start: 20140821, end: 20140821
  36. CSL830 OR PLACEBO [Suspect]
     Active Substance: HUMAN C1-ESTERASE INHIBITOR
  37. BERINERT [Suspect]
     Active Substance: HUMAN C1-ESTERASE INHIBITOR
     Route: 042
     Dates: start: 20140814, end: 20140814
  38. CSL830 OR PLACEBO [Suspect]
     Active Substance: HUMAN C1-ESTERASE INHIBITOR
     Indication: HEREDITARY ANGIOEDEMA
     Dosage: STUDY PRODUCT: 1500 IU/PLACEBO
     Route: 058
     Dates: start: 20140721, end: 20140721
  39. CSL830 OR PLACEBO [Suspect]
     Active Substance: HUMAN C1-ESTERASE INHIBITOR
     Route: 058
     Dates: start: 20140728, end: 20140728
  40. CSL830 OR PLACEBO [Suspect]
     Active Substance: HUMAN C1-ESTERASE INHIBITOR
     Route: 058
     Dates: start: 20140807, end: 20140807
  41. CSL830 OR PLACEBO [Suspect]
     Active Substance: HUMAN C1-ESTERASE INHIBITOR
     Route: 058
     Dates: start: 20140901, end: 20140901
  42. CSL830 OR PLACEBO [Suspect]
     Active Substance: HUMAN C1-ESTERASE INHIBITOR
     Route: 058
     Dates: start: 20140904, end: 20140904
  43. HORMONE ANTAGONISTS AND RELATED AGENTS [Concomitant]
     Active Substance: UNSPECIFIED INGREDIENT
     Indication: HEREDITARY ANGIOEDEMA
     Dates: start: 20140703

REACTIONS (7)
  - Dyspnoea exertional [Recovering/Resolving]
  - Upper respiratory tract infection [Recovering/Resolving]
  - Dyspnoea exertional [Recovered/Resolved]
  - Cough [Recovering/Resolving]
  - Productive cough [Recovered/Resolved]
  - Dyspnoea [Recovered/Resolved]
  - Pulmonary embolism [Not Recovered/Not Resolved]

NARRATIVE: CASE EVENT DATE: 201404
